FAERS Safety Report 14892446 (Version 2)
Quarter: 2018Q2

REPORT INFORMATION
  Report Type: Spontaneous
  Country: US (occurrence: US)
  Receive Date: 20180514
  Receipt Date: 20180525
  Transmission Date: 20180711
  Serious: Yes (Hospitalization)
  Sender: FDA-Public Use
  Company Number: US-BAUSCH-BL-2018-013492

PATIENT
  Age: 89 Year
  Sex: Male

DRUGS (2)
  1. BEXAROTENE. [Suspect]
     Active Substance: BEXAROTENE
     Indication: MYCOSIS FUNGOIDES
     Route: 065
     Dates: start: 2017, end: 2018
  2. BEXAROTENE. [Suspect]
     Active Substance: BEXAROTENE
     Route: 065

REACTIONS (2)
  - Depression [Unknown]
  - Suicide attempt [Recovered/Resolved]

NARRATIVE: CASE EVENT DATE: 20180422
